FAERS Safety Report 17017715 (Version 2)
Quarter: 2020Q3

REPORT INFORMATION
  Report Type: Spontaneous
  Country: DK (occurrence: DK)
  Receive Date: 20191111
  Receipt Date: 20200707
  Transmission Date: 20201102
  Serious: Yes (Other)
  Sender: FDA-Public Use
  Company Number: DK-MYLANLABS-2019M1001909

PATIENT
  Age: 35 Year
  Sex: Male

DRUGS (3)
  1. VENLAFAXINE [Suspect]
     Active Substance: VENLAFAXINE HYDROCHLORIDE
     Indication: DEPRESSION
     Dosage: DOSIS OG STYRKE UKENDT
  2. IBUPROFEN. [Suspect]
     Active Substance: IBUPROFEN
     Indication: PRODUCT USED FOR UNKNOWN INDICATION
     Dosage: UNK(STYRKE: UKENDT. DOSIS: OP TIL 2 GANGE DAGLIGT.)
     Route: 048
     Dates: start: 2017
  3. SERTRALINE [Suspect]
     Active Substance: SERTRALINE HYDROCHLORIDE
     Indication: DEPRESSION
     Dosage: DOSIS OG STYRKE UKENDT

REACTIONS (2)
  - Tinnitus [Unknown]
  - Deafness [Unknown]

NARRATIVE: CASE EVENT DATE: 2017
